FAERS Safety Report 19202685 (Version 1)
Quarter: 2021Q2

REPORT INFORMATION
  Report Type: Spontaneous
  Country: VN (occurrence: VN)
  Receive Date: 20210430
  Receipt Date: 20210430
  Transmission Date: 20210717
  Serious: Yes (Death)
  Sender: FDA-Public Use
  Company Number: VN-ASTRAZENECA-2021A378402

PATIENT
  Age: 65 Year
  Sex: Male

DRUGS (1)
  1. TAGRISSO [Suspect]
     Active Substance: OSIMERTINIB
     Indication: NON-SMALL CELL LUNG CANCER
     Route: 048
     Dates: start: 20210406, end: 20210421

REACTIONS (1)
  - Death [Fatal]

NARRATIVE: CASE EVENT DATE: 20210421
